FAERS Safety Report 4432262-9 (Version None)
Quarter: 2004Q3

REPORT INFORMATION
  Report Type: 
  Country: None (occurrence: None)
  Receive Date: 20040825
  Receipt Date: 20040804
  Transmission Date: 20050211
  Serious: Yes (Hospitalization)
  Sender: FDA-Public Use
  Company Number: JP-MERCK-0408USA00566

PATIENT
  Age: 77 Year
  Sex: Female
  Weight: 47 kg

DRUGS (7)
  1. SAWACILLIN [Suspect]
     Indication: INFECTION PROPHYLAXIS
     Route: 048
     Dates: start: 20040714, end: 20040715
  2. VICCILLIN [Suspect]
     Indication: INFECTION PROPHYLAXIS
     Route: 041
     Dates: start: 20040713, end: 20040713
  3. VICCILLIN [Suspect]
     Route: 041
     Dates: start: 20040713, end: 20040713
  4. PRIMAXIN [Suspect]
     Indication: INFECTION PROPHYLAXIS
     Route: 041
     Dates: start: 20040718, end: 20040720
  5. FOSMICIN [Suspect]
     Indication: INFECTION PROPHYLAXIS
     Route: 041
     Dates: start: 20040715, end: 20040716
  6. GENTACIN [Concomitant]
     Indication: INFECTION PROPHYLAXIS
     Route: 030
     Dates: start: 20040713, end: 20040713
  7. LOXONIN [Concomitant]
     Indication: ANALGESIC THERAPY
     Route: 048
     Dates: start: 20040715, end: 20040724

REACTIONS (5)
  - BLOOD GLUCOSE ABNORMAL [None]
  - DRUG HYPERSENSITIVITY [None]
  - OEDEMA PERIPHERAL [None]
  - PYREXIA [None]
  - RASH ERYTHEMATOUS [None]
